FAERS Safety Report 17157644 (Version 1)
Quarter: 2019Q4

REPORT INFORMATION
  Report Type: Spontaneous
  Country: US (occurrence: US)
  Receive Date: 20191213
  Receipt Date: 20191213
  Transmission Date: 20200122
  Serious: Yes (Other)
  Sender: FDA-Public Use
  Company Number: None

PATIENT
  Age: 63 Year
  Sex: Female
  Weight: 82.35 kg

DRUGS (3)
  1. RANITIDINE. [Suspect]
     Active Substance: RANITIDINE
  2. LOSARTAN. [Suspect]
     Active Substance: LOSARTAN
     Indication: HYPERTENSION
     Dates: start: 20180101, end: 20190330
  3. LOSARTAN. [Suspect]
     Active Substance: LOSARTAN
     Indication: GASTROOESOPHAGEAL REFLUX DISEASE
     Dates: start: 20180101, end: 20190330

REACTIONS (1)
  - Non-small cell lung cancer metastatic [None]

NARRATIVE: CASE EVENT DATE: 20191108
